FAERS Safety Report 12869465 (Version 4)
Quarter: 2020Q1

REPORT INFORMATION
  Report Type: Report from Study
  Country: CA (occurrence: CA)
  Receive Date: 20161021
  Receipt Date: 20200131
  Transmission Date: 20200409
  Serious: Yes (Hospitalization, Other)
  Sender: FDA-Public Use
  Company Number: PHHY2016CA141723

PATIENT
  Sex: Female

DRUGS (2)
  1. XELODA [Suspect]
     Active Substance: CAPECITABINE
     Indication: PRODUCT USED FOR UNKNOWN INDICATION
     Route: 065
     Dates: end: 20191022
  2. TYKERB [Suspect]
     Active Substance: LAPATINIB DITOSYLATE
     Indication: PRODUCT USED FOR UNKNOWN INDICATION
     Dosage: 1250 MG, UNK
     Route: 048
     Dates: start: 20100615, end: 20191022

REACTIONS (6)
  - Gait disturbance [Unknown]
  - Pelvic fracture [Recovering/Resolving]
  - Brain neoplasm [Unknown]
  - Limb injury [Unknown]
  - Fall [Recovering/Resolving]
  - Metastases to central nervous system [Unknown]
